FAERS Safety Report 6093768-2 (Version None)
Quarter: 2009Q1

REPORT INFORMATION
  Report Type: 
  Country: None (occurrence: None)
  Receive Date: 20090219
  Receipt Date: 20081021
  Transmission Date: 20090719
  Serious: No
  Sender: FDA-Public Use
  Company Number: WAES 0810USA03976

PATIENT
  Age: 67 Year
  Sex: Female

DRUGS (5)
  1. JANUVIA [Suspect]
     Indication: DIABETES MELLITUS
     Dosage: 100 MG/DAILY/PO
     Route: 048
     Dates: start: 20081021
  2. LEVOXYL [Concomitant]
  3. TEKTURNA [Concomitant]
  4. ALLERGENIC EXTRACT [Concomitant]
  5. METFORMIN HCL [Concomitant]

REACTIONS (1)
  - VISION BLURRED [None]
